FAERS Safety Report 24427176 (Version 1)
Quarter: 2024Q4

REPORT INFORMATION
  Report Type: Spontaneous
  Country: JP (occurrence: None)
  Receive Date: 20241011
  Receipt Date: 20241011
  Transmission Date: 20250115
  Serious: Yes (Hospitalization, Other)
  Sender: UNICHEM
  Company Number: JP-Unichem Pharmaceuticals (USA) Inc-UCM202410-001320

PATIENT
  Weight: 2.45 kg

DRUGS (1)
  1. VALSARTAN [Suspect]
     Active Substance: VALSARTAN
     Indication: Foetal exposure during pregnancy
     Dosage: UNKNOWN
     Route: 064

REACTIONS (8)
  - Amniotic fluid volume decreased [Recovered/Resolved]
  - Foetal renal impairment [Recovered/Resolved]
  - Spontaneous rupture of membranes [Unknown]
  - Respiratory distress [Recovered/Resolved]
  - Oligohydramnios [Recovering/Resolving]
  - Peripheral vascular disorder [Unknown]
  - Foetal malpresentation [Unknown]
  - Foetal exposure during pregnancy [Unknown]
